FAERS Safety Report 16106620 (Version 1)
Quarter: 2019Q1

REPORT INFORMATION
  Report Type: Spontaneous
  Country: CN (occurrence: CN)
  Receive Date: 20190322
  Receipt Date: 20190322
  Transmission Date: 20190418
  Serious: Yes (Other)
  Sender: FDA-Public Use
  Company Number: CN-IGSA-SR10008028

PATIENT
  Age: 61 Year
  Sex: Male

DRUGS (3)
  1. HUMAN ALBUMIN GRIFOLS 20% 50 ML [Suspect]
     Active Substance: ALBUMIN HUMAN
     Indication: CIRRHOSIS ALCOHOLIC
     Dosage: 10 G, SINGLE
     Dates: start: 20190301
  2. GLUCOSE [Concomitant]
     Active Substance: DEXTROSE
     Dosage: 250 ML, QD
     Route: 042
  3. COENZYME COMPLEX [Concomitant]
     Active Substance: UNSPECIFIED INGREDIENT
     Dosage: 200 IU, QD

REACTIONS (8)
  - Blood pressure increased [Recovered/Resolved]
  - Chills [Recovered/Resolved]
  - Rales [Recovered/Resolved]
  - Tachypnoea [Recovered/Resolved]
  - Wheezing [Recovered/Resolved]
  - Body temperature increased [Recovered/Resolved]
  - Heart rate increased [Recovered/Resolved]
  - Oxygen saturation decreased [Recovered/Resolved]

NARRATIVE: CASE EVENT DATE: 20190301
